FAERS Safety Report 13003551 (Version 1)
Quarter: 2016Q4

REPORT INFORMATION
  Report Type: Spontaneous
  Country: US (occurrence: US)
  Receive Date: 20161206
  Receipt Date: 20161206
  Transmission Date: 20170207
  Serious: No
  Sender: FDA-Public Use
  Company Number: US-009507513-1611USA010856

PATIENT
  Sex: Male
  Weight: 90.7 kg

DRUGS (1)
  1. NASONEX [Suspect]
     Active Substance: MOMETASONE FUROATE
     Indication: RHINITIS ALLERGIC
     Dosage: 50 MCG Q 12 HRS
     Route: 045

REACTIONS (3)
  - Nasal congestion [Unknown]
  - Underdose [Unknown]
  - Device malfunction [Unknown]
